FAERS Safety Report 4326391-8 (Version None)
Quarter: 2004Q1

REPORT INFORMATION
  Report Type: 
  Country: None (occurrence: None)
  Receive Date: 20040329
  Receipt Date: 20040329
  Transmission Date: 20041129
  Serious: Yes (Life-Threatening)
  Sender: FDA-Public Use
  Company Number: None

PATIENT
  Age: 15 Year
  Sex: Male
  Weight: 71.4 kg

DRUGS (1)
  1. TRETINOIN [Suspect]
     Dosage: 90 MG / D
     Dates: start: 20040305

REACTIONS (6)
  - DYSPNOEA [None]
  - HYPOXIA [None]
  - PLEURAL EFFUSION [None]
  - RETINOIC ACID SYNDROME [None]
  - TACHYPNOEA [None]
  - WEIGHT INCREASED [None]
